FAERS Safety Report 6925862-5 (Version None)
Quarter: 2010Q3

REPORT INFORMATION
  Report Type: 
  Country: None (occurrence: None)
  Receive Date: 20100813
  Receipt Date: 20100813
  Transmission Date: 20110219
  Serious: No
  Sender: FDA-Public Use
  Company Number: None

PATIENT
  Sex: Female
  Weight: 107.27 kg

DRUGS (4)
  1. CARBOPLATIN [Suspect]
     Dosage: 5171 MG
     Dates: end: 20100804
  2. TAXOTERE [Suspect]
     Dosage: 1013 MG
     Dates: end: 20100804
  3. HERCEPTIN [Suspect]
     Dosage: 3823 MG
     Dates: end: 20100811
  4. NEULASTA [Concomitant]

REACTIONS (2)
  - HAEMOGLOBIN DECREASED [None]
  - NEUTROPHIL COUNT DECREASED [None]
